FAERS Safety Report 6814062-5 (Version None)
Quarter: 2010Q3

REPORT INFORMATION
  Report Type: 
  Country: None (occurrence: None)
  Receive Date: 20100702
  Receipt Date: 20100601
  Transmission Date: 20110219
  Serious: No
  Sender: FDA-Public Use
  Company Number: US-BAYER-201016279BCC

PATIENT
  Age: 37 Year
  Sex: Female
  Weight: 73 kg

DRUGS (8)
  1. ALEVE (CAPLET) [Suspect]
     Indication: PAIN
     Dosage: AS USED: 440/220 MG  UNIT DOSE: 220 MG
     Route: 048
     Dates: start: 20100501
  2. OUTGROW [Concomitant]
  3. EXCEDRIN (MIGRAINE) [Concomitant]
  4. IBUPROFEN [Concomitant]
  5. AFRIN [Concomitant]
  6. VICKS [Concomitant]
     Route: 045
  7. SUBOXONE [Concomitant]
  8. KRECTAL [Concomitant]

REACTIONS (1)
  - DRUG SCREEN POSITIVE [None]
